FAERS Safety Report 13022522 (Version 1)
Quarter: 2016Q4

REPORT INFORMATION
  Report Type: Spontaneous
  Country: US (occurrence: US)
  Receive Date: 20161213
  Receipt Date: 20161213
  Transmission Date: 20170207
  Serious: Yes (Other)
  Sender: FDA-Public Use
  Company Number: US-AMGEN-USASP2016174067

PATIENT
  Age: 34 Year
  Sex: Female

DRUGS (5)
  1. PREDNISONE. [Concomitant]
     Active Substance: PREDNISONE
     Indication: ROAD TRAFFIC ACCIDENT
     Dosage: 30 MG, QD
  2. PREDNISONE. [Concomitant]
     Active Substance: PREDNISONE
     Dosage: 60 MG, UNK
  3. ENBREL [Suspect]
     Active Substance: ETANERCEPT
     Indication: PYODERMA GANGRENOSUM
     Dosage: 25 MG, 2 TIMES/WK
     Route: 058
  4. PREDNISONE. [Concomitant]
     Active Substance: PREDNISONE
     Dosage: 5 MG, QD
  5. ENBREL [Suspect]
     Active Substance: ETANERCEPT
     Dosage: 100 MG, QWK
     Route: 065

REACTIONS (3)
  - Off label use [Unknown]
  - Road traffic accident [Unknown]
  - Pyoderma gangrenosum [Recovered/Resolved]
